FAERS Safety Report 8213114-5 (Version None)
Quarter: 2012Q1

REPORT INFORMATION
  Report Type: 
  Country: None (occurrence: None)
  Receive Date: 20120228
  Receipt Date: 20110714
  Transmission Date: 20120608
  Serious: Yes (Other)
  Sender: FDA-Public Use
  Company Number: RB-30482-2011

PATIENT
  Sex: Male

DRUGS (2)
  1. SUBOXONE 8  MG [Suspect]
     Indication: DRUG DEPENDENCE
     Dosage: (16 MG  SUBLINGUAL)
     Route: 060
     Dates: start: 20100218, end: 20110704
  2. HEROIN (NONE) [Suspect]
     Indication: PRODUCT USED FOR UNKNOWN INDICATION
     Dosage: 12 BAGS OF HEROIN)
     Dates: end: 20110704

REACTIONS (1)
  - OVERDOSE [None]
